FAERS Safety Report 4495526-9 (Version None)
Quarter: 2004Q4

REPORT INFORMATION
  Report Type: 
  Country: None (occurrence: None)
  Receive Date: 20041104
  Receipt Date: 20041018
  Transmission Date: 20050328
  Serious: Yes (Death)
  Sender: FDA-Public Use
  Company Number: 2004-BP-10534RO

PATIENT
  Age: 23 Year
  Sex: Male

DRUGS (2)
  1. COCAINE HCL TOPICAL SOLUTION, 10% (COCAINE) [Suspect]
  2. METHYLENEDIOXYMETHAMPHETAMINE (METHYLENEDIOXYMETHAMPHETAMINE) [Suspect]

REACTIONS (4)
  - BODY TEMPERATURE INCREASED [None]
  - COMA [None]
  - DRUG SCREEN POSITIVE [None]
  - HYPERKALAEMIA [None]
